FAERS Safety Report 13015921 (Version 1)
Quarter: 2016Q4

REPORT INFORMATION
  Report Type: Spontaneous
  Country: US (occurrence: US)
  Receive Date: 20161212
  Receipt Date: 20161212
  Transmission Date: 20170207
  Serious: No
  Sender: FDA-Public Use
  Company Number: US-JNJFOC-20161026797

PATIENT
  Age: 70 Year
  Sex: Female
  Weight: 54.43 kg

DRUGS (16)
  1. LISINOPRIL. [Concomitant]
     Active Substance: LISINOPRIL
     Route: 048
  2. ATORVASTATIN [Concomitant]
     Active Substance: ATORVASTATIN
     Route: 048
  3. XARELTO [Suspect]
     Active Substance: RIVAROXABAN
     Indication: ATRIAL FIBRILLATION
     Route: 048
     Dates: start: 2016
  4. METHOTREXATE. [Suspect]
     Active Substance: METHOTREXATE
     Indication: PRODUCT USED FOR UNKNOWN INDICATION
     Route: 048
  5. FOLIC ACID. [Concomitant]
     Active Substance: FOLIC ACID
     Route: 048
  6. XARELTO [Suspect]
     Active Substance: RIVAROXABAN
     Indication: CEREBROVASCULAR ACCIDENT PROPHYLAXIS
     Route: 048
     Dates: start: 2016
  7. MONTELUKAST [Concomitant]
     Active Substance: MONTELUKAST SODIUM
     Route: 048
  8. LORAZEPAM. [Concomitant]
     Active Substance: LORAZEPAM
     Route: 048
  9. METOPROLOL. [Concomitant]
     Active Substance: METOPROLOL
     Route: 048
  10. SYNTHROID [Concomitant]
     Active Substance: LEVOTHYROXINE SODIUM
     Route: 048
  11. ALBUTEROL. [Concomitant]
     Active Substance: ALBUTEROL
     Route: 055
  12. TRAMADOL. [Concomitant]
     Active Substance: TRAMADOL
     Route: 048
  13. CENTRUM SILVER [Concomitant]
     Active Substance: MINERALS\VITAMINS
     Indication: NUTRITIONAL SUPPLEMENTATION
     Route: 048
  14. ENBREL [Concomitant]
     Active Substance: ETANERCEPT
     Route: 065
  15. HYDROCHLOROTHIAZIDE. [Concomitant]
     Active Substance: HYDROCHLOROTHIAZIDE
     Route: 048
  16. MAGNESIUM [Concomitant]
     Active Substance: MAGNESIUM
     Route: 048

REACTIONS (3)
  - Alanine aminotransferase increased [Unknown]
  - Inappropriate schedule of drug administration [Unknown]
  - Nerve conduction studies abnormal [Unknown]

NARRATIVE: CASE EVENT DATE: 201610
